FAERS Safety Report 5936079-5 (Version None)
Quarter: 2008Q4

REPORT INFORMATION
  Report Type: 
  Country: None (occurrence: None)
  Receive Date: 20081030
  Receipt Date: 20081020
  Transmission Date: 20090506
  Serious: Yes (Other)
  Sender: FDA-Public Use
  Company Number: US-PFIZER INC-2008036343

PATIENT
  Sex: Male
  Weight: 64 kg

DRUGS (6)
  1. CELEBREX [Suspect]
     Indication: OSTEOARTHRITIS
     Route: 048
     Dates: start: 20030101
  2. CELEBREX [Suspect]
     Indication: PROCEDURAL PAIN
  3. WARFARIN SODIUM [Suspect]
  4. HYZAAR [Concomitant]
     Indication: HYPERTENSION
  5. CARDURA [Concomitant]
     Indication: HYPERTENSION
  6. TESTOSTERONE [Concomitant]

REACTIONS (3)
  - DYSPEPSIA [None]
  - HAEMATURIA [None]
  - OSTEOARTHRITIS [None]
